FAERS Safety Report 24236754 (Version 2)
Quarter: 2024Q4

REPORT INFORMATION
  Report Type: Spontaneous
  Country: US (occurrence: US)
  Receive Date: 20240822
  Receipt Date: 20241023
  Transmission Date: 20250114
  Serious: No
  Sender: LEO PHARM
  Company Number: US-LEO Pharma-372877

PATIENT
  Age: 67 Year
  Sex: Male

DRUGS (1)
  1. ADBRY [Suspect]
     Active Substance: TRALOKINUMAB-LDRM
     Indication: Dermatitis atopic
     Dosage: TREATMENT REPORTED AS ONGOING
     Route: 058
     Dates: start: 202407

REACTIONS (5)
  - Pruritus [Unknown]
  - Joint swelling [Unknown]
  - Peripheral swelling [Unknown]
  - Condition aggravated [Unknown]
  - Rash [Unknown]
